FAERS Safety Report 23851811 (Version 2)
Quarter: 2024Q2

REPORT INFORMATION
  Report Type: Report from Study
  Country: US (occurrence: US)
  Receive Date: 20240514
  Receipt Date: 20240517
  Transmission Date: 20240716
  Serious: No
  Sender: FDA-Public Use
  Company Number: US-DECIPHERA PHARMACEUTICALS LLC-2023US001043

PATIENT
  Age: 79 Year
  Sex: Female

DRUGS (3)
  1. QINLOCK [Suspect]
     Active Substance: RIPRETINIB
     Indication: Gastrointestinal stromal tumour
     Dosage: 150 MILLIGRAM, QD
     Route: 048
     Dates: start: 20231127
  2. QINLOCK [Suspect]
     Active Substance: RIPRETINIB
     Dosage: 150 MILLIGRAM, QD (3 TABLETS [50MG TABLETS] MONDAY, WEDNESDAY, FRIDAY. THEN 2 TABLETS MONDAY, WEDNES
     Route: 048
  3. QINLOCK [Suspect]
     Active Substance: RIPRETINIB
     Dosage: 100 MILLIGRAM, QD (3 TABLETS [50MG TABLETS] MONDAY, WEDNESDAY, FRIDAY. THEN 2 TABLETS MONDAY, WEDNES
     Route: 048

REACTIONS (8)
  - Adverse event [Unknown]
  - Asthenia [Unknown]
  - Pain [Unknown]
  - Decreased activity [Unknown]
  - Neoplasm progression [Unknown]
  - Quality of life decreased [Unknown]
  - Inappropriate schedule of product administration [Unknown]
  - Drug ineffective [Unknown]
